FAERS Safety Report 4865858-0 (Version None)
Quarter: 2005Q4

REPORT INFORMATION
  Report Type: 
  Country: None (occurrence: None)
  Receive Date: 20051220
  Receipt Date: 20051207
  Transmission Date: 20060501
  Serious: Yes (Other)
  Sender: FDA-Public Use
  Company Number: 2005151385

PATIENT
  Age: 18 Year
  Sex: Female

DRUGS (3)
  1. ZITHROMAX [Suspect]
     Indication: NASOPHARYNGITIS
     Dosage: 500 MG, ORAL
     Route: 048
     Dates: start: 20051019, end: 20051021
  2. COUGH SYRUP (ANTIMONY POTASSIUM TARTRATE, OPIUM TINCTURE, TERPIN HYDRA [Concomitant]
  3. ALL OTHER THERAPEUTIC PRODUCTS (ALL OTHER THERAPEUTIC PRODUCTS) [Concomitant]

REACTIONS (8)
  - ANGIONEUROTIC OEDEMA [None]
  - APHTHOUS STOMATITIS [None]
  - ASTHENIA [None]
  - GENERAL PHYSICAL HEALTH DETERIORATION [None]
  - LIP BLISTER [None]
  - OCULAR HYPERAEMIA [None]
  - ORAL MUCOSAL BLISTERING [None]
  - WEIGHT DECREASED [None]
